FAERS Safety Report 7877514-5 (Version None)
Quarter: 2011Q4

REPORT INFORMATION
  Report Type: 
  Country: None (occurrence: None)
  Receive Date: 20111031
  Receipt Date: 20111025
  Transmission Date: 20120403
  Serious: Yes (Life-Threatening)
  Sender: FDA-Public Use
  Company Number: JP-SANOFI-AVENTIS-2011SA041891

PATIENT
  Age: 69 Year
  Sex: Female
  Weight: 49.4 kg

DRUGS (17)
  1. HEPARIN [Suspect]
     Dosage: DOSE:10000 UNIT(S)
     Route: 042
     Dates: start: 20090816, end: 20090817
  2. HEPARIN [Suspect]
     Dosage: DOSE:12400 UNIT(S)
     Route: 041
     Dates: start: 20090816, end: 20090817
  3. NICORANDIL [Concomitant]
     Route: 051
     Dates: start: 20090816, end: 20090818
  4. CEFAZOLIN SODIUM [Concomitant]
     Indication: PROPHYLAXIS
     Route: 051
     Dates: start: 20090816, end: 20090817
  5. ASPIRIN [Concomitant]
     Route: 048
     Dates: start: 20090816
  6. ELECTROLYTE SOLUTIONS [Concomitant]
     Route: 051
     Dates: start: 20090816, end: 20090819
  7. RINGER-ACETAT SPECIAL [Concomitant]
     Dosage: 500 TO 1000 ML ONCE DAILY
     Route: 051
     Dates: start: 20090816, end: 20090817
  8. PRIMPERAN TAB [Concomitant]
     Dosage: ONCE TO 3 TIMES DAILY
     Route: 051
     Dates: start: 20090816, end: 20090817
  9. DOPAMINE HYDROCHLORIDE [Concomitant]
     Dosage: 2 TO 8 ML/H
     Route: 051
     Dates: start: 20090816, end: 20090820
  10. MORPHINE HCL ELIXIR [Concomitant]
     Dosage: 3 TO 9 MG ONCE DAILY
     Route: 051
     Dates: start: 20090816, end: 20090817
  11. LANSOPRAZOLE [Concomitant]
     Indication: PROPHYLAXIS
     Route: 048
     Dates: start: 20090816
  12. CRESTOR [Concomitant]
     Route: 048
     Dates: start: 20090816
  13. OMEPRAZOLE [Concomitant]
     Indication: PROPHYLAXIS
     Route: 051
     Dates: start: 20090816, end: 20090818
  14. CLOPIDOGREL BISULFATE [Suspect]
     Route: 048
     Dates: start: 20090816, end: 20090816
  15. CLOPIDOGREL BISULFATE [Suspect]
     Route: 048
     Dates: start: 20090817
  16. LOSARTAN POTASSIUM [Concomitant]
     Route: 048
     Dates: start: 20090824, end: 20090930
  17. LOSARTAN POTASSIUM [Concomitant]
     Indication: CARDIAC TAMPONADE
     Route: 048
     Dates: start: 20090824, end: 20090930

REACTIONS (1)
  - PERICARDIAL HAEMORRHAGE [None]
